FAERS Safety Report 11232426 (Version 5)
Quarter: 2016Q2

REPORT INFORMATION
  Report Type: Spontaneous
  Country: US (occurrence: US)
  Receive Date: 20150701
  Receipt Date: 20160621
  Transmission Date: 20160815
  Serious: Yes (Hospitalization, Other)
  Sender: FDA-Public Use
  Company Number: US-009507513-1507USA000487

PATIENT
  Sex: Female
  Weight: 115.65 kg

DRUGS (3)
  1. NUVARING [Suspect]
     Active Substance: ETHINYL ESTRADIOL\ETONOGESTREL
     Indication: DYSMENORRHOEA
     Dosage: UNK
     Route: 067
     Dates: start: 2008, end: 20121130
  2. NUVARING [Suspect]
     Active Substance: ETHINYL ESTRADIOL\ETONOGESTREL
     Indication: SKIN DISORDER
  3. NUVARING [Suspect]
     Active Substance: ETHINYL ESTRADIOL\ETONOGESTREL
     Indication: MENORRHAGIA

REACTIONS (12)
  - Anxiety [Unknown]
  - Tonsillectomy [Unknown]
  - Injection site injury [Unknown]
  - Off label use [Unknown]
  - Upper limb fracture [Unknown]
  - Asthma exercise induced [Unknown]
  - Increased tendency to bruise [Recovered/Resolved]
  - Menorrhagia [Unknown]
  - Portal vein thrombosis [Unknown]
  - Cat scratch disease [Unknown]
  - Mesenteric vein thrombosis [Recovered/Resolved with Sequelae]
  - Hepatic steatosis [Unknown]

NARRATIVE: CASE EVENT DATE: 20121126
